FAERS Safety Report 7812090-4 (Version None)
Quarter: 2011Q4

REPORT INFORMATION
  Report Type: 
  Country: None (occurrence: None)
  Receive Date: 20111011
  Receipt Date: 20110927
  Transmission Date: 20120403
  Serious: Yes (Death, Hospitalization)
  Sender: FDA-Public Use
  Company Number: UTC-010169

PATIENT
  Age: 72 Year
  Sex: Female
  Weight: 71.8 kg

DRUGS (1)
  1. TYVASO [Suspect]
     Indication: COR PULMONALE CHRONIC
     Dosage: 216 MCG (54 MCG,4 IN 1 D),INHALATION
     Route: 055
     Dates: start: 20110718

REACTIONS (3)
  - ASTHENIA [None]
  - MALNUTRITION [None]
  - MYOCARDIAL INFARCTION [None]
